FAERS Safety Report 4917200-4 (Version None)
Quarter: 2006Q1

REPORT INFORMATION
  Report Type: 
  Country: None (occurrence: None)
  Receive Date: 20060221
  Receipt Date: 20060213
  Transmission Date: 20060701
  Serious: Yes (Other)
  Sender: FDA-Public Use
  Company Number: GB-JNJFOC-20060203402

PATIENT
  Sex: Male
  Weight: 82 kg

DRUGS (8)
  1. REMICADE [Suspect]
     Indication: RHEUMATOID ARTHRITIS
     Route: 042
  2. METHOTREXATE [Concomitant]
     Route: 065
  3. SULFASALAZINE [Concomitant]
     Route: 065
  4. AMLODIPINE [Concomitant]
     Route: 065
  5. CO-PROXAMOL [Concomitant]
     Route: 065
  6. CO-PROXAMOL [Concomitant]
     Route: 065
  7. HCQ [Concomitant]
     Route: 065
  8. NSAID [Concomitant]
     Route: 061

REACTIONS (1)
  - BASAL CELL CARCINOMA [None]
